FAERS Safety Report 6935309-0 (Version None)
Quarter: 2010Q3

REPORT INFORMATION
  Report Type: 
  Country: None (occurrence: None)
  Receive Date: 20100822
  Receipt Date: 20100802
  Transmission Date: 20110219
  Serious: Yes (Hospitalization, Other)
  Sender: FDA-Public Use
  Company Number: PHHY2010DE51954

PATIENT
  Sex: Female

DRUGS (4)
  1. RASILEZ HCT [Suspect]
     Indication: HYPERTENSION
     Dosage: 1 DF, DAILY
     Route: 048
     Dates: start: 20100101, end: 20100701
  2. RASILEZ HCT [Suspect]
     Dosage: 1 DF IN THE MORNING
     Route: 048
     Dates: start: 20100701, end: 20100801
  3. RASILEZ HCT [Suspect]
     Dosage: 150 MG, 1 DF IN THE EVENING
     Route: 048
     Dates: start: 20100701, end: 20100801
  4. RASILEZ HCT [Suspect]
     Dosage: 300/12.5 MG, 1 DF IN THE MORNING
     Route: 048
     Dates: start: 20100802

REACTIONS (9)
  - ABDOMINAL DISCOMFORT [None]
  - BLOOD PRESSURE FLUCTUATION [None]
  - BLOOD PRESSURE INCREASED [None]
  - BLOOD URINE PRESENT [None]
  - DIARRHOEA [None]
  - EYE SWELLING [None]
  - HYPERHIDROSIS [None]
  - PROTEIN URINE PRESENT [None]
  - URINARY TRACT INFECTION [None]
